FAERS Safety Report 11297917 (Version 1)
Quarter: 2015Q3

REPORT INFORMATION
  Report Type: Spontaneous
  Country: US (occurrence: US)
  Receive Date: 20150722
  Receipt Date: 20150722
  Transmission Date: 20151125
  Serious: Yes (Other)
  Sender: FDA-Public Use
  Company Number: US-ELI_LILLY_AND_COMPANY-US201006003798

PATIENT
  Age: 14 Year
  Sex: Female
  Weight: 41.72 kg

DRUGS (1)
  1. HUMATROPE [Suspect]
     Active Substance: SOMATROPIN
     Dosage: 2 D/F, MONTHLY (1/M)

REACTIONS (2)
  - Incorrect dose administered [Recovered/Resolved]
  - Overdose [Recovered/Resolved]
